FAERS Safety Report 8947766 (Version 4)
Quarter: 2013Q4

REPORT INFORMATION
  Report Type: Spontaneous
  Country: DK (occurrence: None)
  Receive Date: 20121127
  Receipt Date: 20131024
  Transmission Date: 20140711
  Serious: Yes (Other)
  Sender: FDA-Public Use
  Company Number: 1502745

PATIENT
  Age: 51 Year
  Sex: Female
  Weight: 69 kg

DRUGS (9)
  1. OXALIPLATIN [Suspect]
     Indication: HER-2 POSITIVE BREAST CANCER
  2. VINORELBINE TARTRATE [Suspect]
     Indication: HER-2 POSITIVE BREAST CANCER
     Dates: start: 20121026
  3. CAPECITABINE [Suspect]
     Indication: HER-2 POSITIVE BREAST CANCER
  4. PACLITAXEL [Suspect]
     Indication: BREAST CANCER
     Dosage: 140/120 MG, 1 WEEK, INTRAVENOUS (NOT OTHERWISE SPECIFIED)?
     Route: 042
     Dates: start: 20061206, end: 20070606
  5. ANASTROZOL [Suspect]
     Indication: HER-2 POSITIVE BREAST CANCER
  6. GOSERELIN ACETATE [Suspect]
     Indication: HER-2 POSITIVE BREAST CANCER
  7. FULVESTRANT [Suspect]
     Indication: HER-2 POSITIVE BREAST CANCER
     Dosage: INTRAVENOUS (NOT OTHERWISE SPECIFIED)?
     Route: 042
  8. TRASTUZUMAB [Suspect]
     Indication: HER-2 POSITIVE BREAST CANCER
     Dates: start: 20061129, end: 20080326
  9. TRASTUZUMAB [Suspect]
     Indication: PRODUCT USED FOR UNKNOWN INDICATION
     Dates: start: 20061129, end: 20080326

REACTIONS (8)
  - Cardiotoxicity [None]
  - Metastases to liver [None]
  - Ejection fraction decreased [None]
  - Peripheral motor neuropathy [None]
  - Neuralgia [None]
  - Dyspnoea exertional [None]
  - Peripheral sensory neuropathy [None]
  - Hypertension [None]
